FAERS Safety Report 19870311 (Version 1)
Quarter: 2021Q3

REPORT INFORMATION
  Report Type: Other
  Country: CN (occurrence: CN)
  Receive Date: 20210923
  Receipt Date: 20210923
  Transmission Date: 20211014
  Serious: Yes (Other)
  Sender: FDA-Public Use
  Company Number: CN-ROCHE-2916535

PATIENT

DRUGS (3)
  1. RANIBIZUMAB. [Suspect]
     Active Substance: RANIBIZUMAB
     Dosage: 1 DF, QMO (0.05 MG/0.5 ML THIRD INJECTION)
     Route: 042
  2. RANIBIZUMAB. [Suspect]
     Active Substance: RANIBIZUMAB
     Indication: DIABETIC RETINAL OEDEMA
     Dosage: 1 DF, QMO (0.05 MG/0.5 ML FIRST SECOND AND THIRD INJECTION )
     Route: 042
  3. RANIBIZUMAB. [Suspect]
     Active Substance: RANIBIZUMAB
     Dosage: 1 DF, QMO (0.05 MG/0.5 ML SECOND INJECTION)
     Route: 042

REACTIONS (1)
  - Vitreous haemorrhage [Unknown]
